FAERS Safety Report 9310633 (Version 3)
Quarter: 2013Q3

REPORT INFORMATION
  Report Type: Spontaneous
  Country: US (occurrence: US)
  Receive Date: 20130527
  Receipt Date: 20130723
  Transmission Date: 20140515
  Serious: Yes (Death, Hospitalization, Other)
  Sender: FDA-Public Use
  Company Number: US-AMGEN-USASP2013037292

PATIENT
  Age: 62 Year
  Sex: Female
  Weight: 83.45 kg

DRUGS (10)
  1. PROCRIT [Suspect]
     Indication: PRODUCT USED FOR UNKNOWN INDICATION
     Dosage: 20000 UNIT, UNK
  2. PREDNISONE [Concomitant]
     Dosage: 5 MG, 2 DOSES IN 5 WEEKS
  3. CLONIDINE [Concomitant]
     Dosage: 0.1 MG, 1/2 BID
     Route: 048
  4. CALCITRIOL [Concomitant]
     Dosage: 0.25 MUG, QD
     Route: 048
  5. SIMVASTATIN [Concomitant]
     Dosage: 40 MG, QD
     Route: 048
  6. FUROSEMIDE [Concomitant]
     Dosage: 20 MG, BID PRN
     Route: 048
  7. CARVEDILOL [Concomitant]
     Dosage: 12.5 MG, BID
     Route: 048
  8. HYDRALAZINE [Concomitant]
     Dosage: 100 MG, 1/2 BID
     Route: 048
  9. REMICADE [Concomitant]
     Dosage: 5 MG/KG, Q6WK
     Dates: start: 2001
  10. METHOTREXATE [Concomitant]
     Dosage: UNK

REACTIONS (19)
  - Death [Fatal]
  - Hypertension [Unknown]
  - Weight decreased [Unknown]
  - Renal failure chronic [Unknown]
  - Anaemia [Unknown]
  - Atrial fibrillation [Unknown]
  - Proteinuria [Unknown]
  - Rheumatoid arthritis [Unknown]
  - Joint destruction [Unknown]
  - Alopecia [Unknown]
  - Joint contracture [Unknown]
  - Finger deformity [Unknown]
  - Musculoskeletal stiffness [Unknown]
  - Nodule [Unknown]
  - Pain [Unknown]
  - Synovitis [Unknown]
  - Pain in extremity [Unknown]
  - Haemorrhoids [Unknown]
  - Muscle atrophy [Unknown]
